FAERS Safety Report 7380237-2 (Version None)
Quarter: 2011Q1

REPORT INFORMATION
  Report Type: 
  Country: None (occurrence: None)
  Receive Date: 20110324
  Receipt Date: 20110324
  Transmission Date: 20110831
  Serious: Yes (Other)
  Sender: FDA-Public Use
  Company Number: None

PATIENT
  Age: 85 Year
  Sex: Male
  Weight: 97 kg

DRUGS (1)
  1. VITAMIN A [Suspect]
     Dosage: 20,000 UNITS EVERY DAY PO
     Route: 048
     Dates: start: 20090420, end: 20110321

REACTIONS (1)
  - LUNG NEOPLASM [None]
